FAERS Safety Report 15728590 (Version 1)
Quarter: 2018Q4

REPORT INFORMATION
  Report Type: Spontaneous
  Country: US (occurrence: US)
  Receive Date: 20181130
  Receipt Date: 20181130
  Transmission Date: 20190205
  Serious: Yes (Hospitalization)
  Sender: FDA-Public Use
  Company Number: None

PATIENT
  Age: 60 Year
  Sex: Female
  Weight: 65.77 kg

DRUGS (11)
  1. ALENDRONATE [Suspect]
     Active Substance: ALENDRONATE SODIUM
     Indication: OSTEOPENIA
     Dosage: ?          QUANTITY:1 DF DOSAGE FORM;?
     Dates: start: 2003, end: 20181023
  2. ATIVAN [Concomitant]
     Active Substance: LORAZEPAM
  3. CAL/MAG/D3 [Concomitant]
  4. NORCO [Concomitant]
     Active Substance: ACETAMINOPHEN\HYDROCODONE BITARTRATE
  5. VITAMIN B12 [Concomitant]
     Active Substance: CYANOCOBALAMIN
  6. MEHOCARBAMOL [Concomitant]
  7. MULTI VIT [Concomitant]
  8. IBUPROFEN. [Concomitant]
     Active Substance: IBUPROFEN
  9. WALKER [Concomitant]
  10. RETAINE MCD EYE DROPS [Concomitant]
  11. VENLAFAXINE [Concomitant]
     Active Substance: VENLAFAXINE HYDROCHLORIDE

REACTIONS (3)
  - Fall [None]
  - Femur fracture [None]
  - Pathological fracture [None]

NARRATIVE: CASE EVENT DATE: 20181023
